FAERS Safety Report 9352175 (Version 1)
Quarter: 2013Q2

REPORT INFORMATION
  Report Type: Spontaneous
  Country: GB (occurrence: None)
  Receive Date: 20130612
  Receipt Date: 20130612
  Transmission Date: 20140414
  Serious: Yes (Hospitalization)
  Sender: FDA-Public Use
  Company Number: AUR-APL-2013-04795

PATIENT
  Age: 70 Year
  Sex: Male
  Weight: 66.95 kg

DRUGS (1)
  1. AMOXICILLIN+CLAVULANIC ACID [Suspect]
     Indication: APPENDICECTOMY
     Dates: end: 20130327

REACTIONS (3)
  - Jaundice [None]
  - Cholestasis [None]
  - Renal impairment [None]
